FAERS Safety Report 12227876 (Version 1)
Quarter: 2016Q2

REPORT INFORMATION
  Report Type: Spontaneous
  Country: US (occurrence: US)
  Receive Date: 20160401
  Receipt Date: 20160401
  Transmission Date: 20160815
  Serious: Yes (Other)
  Sender: FDA-Public Use
  Company Number: US-BEH-2016060561

PATIENT
  Age: 65 Year
  Sex: Female
  Weight: 69 kg

DRUGS (32)
  1. EPIPEN [Concomitant]
     Active Substance: EPINEPHRINE
  2. SINGULAIR [Concomitant]
     Active Substance: MONTELUKAST SODIUM
  3. ZADITOR [Concomitant]
     Active Substance: KETOTIFEN FUMARATE
  4. TYLENOL EX-STR [Concomitant]
  5. HIZENTRA [Suspect]
     Active Substance: HUMAN IMMUNOGLOBULIN G
     Indication: HYPOGAMMAGLOBULINAEMIA
     Dosage: 4 GM VIALS
     Route: 058
  6. TOBRAMYCIN. [Concomitant]
     Active Substance: TOBRAMYCIN
  7. HYDROXYZINE [Concomitant]
     Active Substance: HYDROXYZINE\HYDROXYZINE HYDROCHLORIDE
  8. VITAMIN B [Concomitant]
     Active Substance: VITAMIN B
  9. LMX [Concomitant]
     Active Substance: LIDOCAINE
  10. CENTRUM [Concomitant]
     Active Substance: VITAMINS
  11. LIPITOR [Concomitant]
     Active Substance: ATORVASTATIN CALCIUM
  12. ASPIRIN. [Concomitant]
     Active Substance: ASPIRIN
  13. TIZANIDINE. [Concomitant]
     Active Substance: TIZANIDINE
  14. LIDOCAINE/PRILOCAINE [Concomitant]
  15. PROTONIX [Concomitant]
     Active Substance: PANTOPRAZOLE SODIUM
  16. KEFLEX [Concomitant]
     Active Substance: CEPHALEXIN
  17. CHLOR-TRIMETON [Concomitant]
     Active Substance: CHLORPHENIRAMINE MALEATE
  18. VITAMIN D [Concomitant]
     Active Substance: CHOLECALCIFEROL
  19. VITAMIN E [Concomitant]
     Active Substance: .ALPHA.-TOCOPHEROL
  20. HIZENTRA [Suspect]
     Active Substance: HUMAN IMMUNOGLOBULIN G
     Indication: HYPOGAMMAGLOBULINAEMIA
     Dosage: 4 GM VIALS
     Route: 058
  21. ACETAMINOPHEN. [Concomitant]
     Active Substance: ACETAMINOPHEN
  22. DIPHENHYDRAMINE. [Concomitant]
     Active Substance: DIPHENHYDRAMINE
  23. MEDROL [Concomitant]
     Active Substance: METHYLPREDNISOLONE
  24. FAMOTIDINE. [Concomitant]
     Active Substance: FAMOTIDINE
  25. NASONEX [Concomitant]
     Active Substance: MOMETASONE FUROATE
  26. LOMOTIL [Concomitant]
     Active Substance: ATROPINE SULFATE\DIPHENOXYLATE HYDROCHLORIDE
  27. FLEXERIL [Concomitant]
     Active Substance: CYCLOBENZAPRINE HYDROCHLORIDE
  28. HIZENTRA [Suspect]
     Active Substance: HUMAN IMMUNOGLOBULIN G
     Indication: HYPOGAMMAGLOBULINAEMIA
     Dosage: 4 GM VIALS
     Route: 058
  29. EVISTA [Concomitant]
     Active Substance: RALOXIFENE HYDROCHLORIDE
  30. POTASSIUM [Concomitant]
     Active Substance: POTASSIUM
  31. VITAMIN C [Concomitant]
     Active Substance: ASCORBIC ACID
  32. LASIX [Concomitant]
     Active Substance: FUROSEMIDE

REACTIONS (3)
  - Swollen tongue [Unknown]
  - Infusion site pruritus [Unknown]
  - Restlessness [Unknown]

NARRATIVE: CASE EVENT DATE: 20160319
